FAERS Safety Report 9553993 (Version 3)
Quarter: 2013Q4

REPORT INFORMATION
  Report Type: Spontaneous
  Country: US (occurrence: US)
  Receive Date: 20130925
  Receipt Date: 20131219
  Transmission Date: 20140711
  Serious: Yes (Hospitalization)
  Sender: FDA-Public Use
  Company Number: US-GLAXOSMITHKLINE-A1042458A

PATIENT
  Age: 64 Year
  Sex: Female

DRUGS (11)
  1. ADVAIR [Suspect]
     Indication: CHRONIC OBSTRUCTIVE PULMONARY DISEASE
     Dosage: 1PUFF TWICE PER DAY
     Route: 055
     Dates: start: 2011
  2. VENTOLIN [Suspect]
     Indication: BRONCHOSPASM
     Route: 055
     Dates: start: 2011
  3. HYDRODIURIL [Concomitant]
  4. SPIRONOLACTONE [Concomitant]
  5. DECADRON [Concomitant]
     Indication: PRODUCT USED FOR UNKNOWN INDICATION
     Route: 065
  6. DOXYCYCLINE [Concomitant]
  7. VITAMIN B12 [Concomitant]
  8. VITAMIN D [Concomitant]
  9. FOLIC ACID [Concomitant]
  10. OMEGA 3 [Concomitant]
  11. EPIPEN [Concomitant]

REACTIONS (1)
  - Chronic obstructive pulmonary disease [Recovering/Resolving]
